FAERS Safety Report 8295799-0 (Version None)
Quarter: 2012Q2

REPORT INFORMATION
  Report Type: 
  Country: None (occurrence: None)
  Receive Date: 20120416
  Receipt Date: 20120405
  Transmission Date: 20120825
  Serious: Yes (Other)
  Sender: FDA-Public Use
  Company Number: 2012SP018507

PATIENT
  Age: 17 Year
  Sex: Female

DRUGS (2)
  1. SERTRALINE HYDROCHLORIDE (SERTRALINE HYDROCHLORIDE) (50 MG) [Suspect]
  2. CERAZETTE (DESOGESTREL /00754001/) [Suspect]

REACTIONS (2)
  - VAGINAL HAEMORRHAGE [None]
  - DRUG INTERACTION [None]
